FAERS Safety Report 6187472-X (Version None)
Quarter: 2009Q2

REPORT INFORMATION
  Report Type: 
  Country: None (occurrence: None)
  Receive Date: 20090508
  Receipt Date: 20090430
  Transmission Date: 20091009
  Serious: Yes (Other)
  Sender: FDA-Public Use
  Company Number: 261386

PATIENT
  Age: 30 Year
  Sex: Female

DRUGS (1)
  1. EPINEPHRINE [Suspect]
     Dosage: ESTIMATED DOSE OF 40 MG INTRAVENOUS
     Route: 042

REACTIONS (9)
  - CARDIAC ENZYMES INCREASED [None]
  - CHEST PAIN [None]
  - EJECTION FRACTION DECREASED [None]
  - ELECTROCARDIOGRAM QT PROLONGED [None]
  - ELECTROCARDIOGRAM T WAVE INVERSION [None]
  - OVERDOSE [None]
  - RIGHT VENTRICULAR DYSFUNCTION [None]
  - STRESS CARDIOMYOPATHY [None]
  - SUICIDE ATTEMPT [None]
